FAERS Safety Report 11922443 (Version 2)
Quarter: 2016Q1

REPORT INFORMATION
  Report Type: Spontaneous
  Country: US (occurrence: US)
  Receive Date: 20160115
  Receipt Date: 20160122
  Transmission Date: 20160526
  Serious: Yes (Life-Threatening, Hospitalization, Other)
  Sender: FDA-Public Use
  Company Number: US-ELI_LILLY_AND_COMPANY-US201601004123

PATIENT
  Age: 53 Year
  Sex: Female
  Weight: 121.9 kg

DRUGS (22)
  1. ASPIRIN                            /00002701/ [Concomitant]
     Active Substance: ASPIRIN
     Indication: PROPHYLAXIS
     Dosage: 81 MG, QD
     Route: 065
     Dates: start: 2005
  2. MOTRIN [Concomitant]
     Active Substance: IBUPROFEN
     Indication: HEADACHE
     Dosage: 400 MG, PRN
     Route: 048
     Dates: start: 20150425
  3. REFRESH                            /00007001/ [Concomitant]
     Indication: DRY EYE
     Dosage: 2 GTT, PRN
     Route: 047
     Dates: start: 2005
  4. KEFLEX [Concomitant]
     Active Substance: CEPHALEXIN
     Indication: PROPHYLAXIS
     Dosage: 500 MG, QID
     Route: 048
     Dates: start: 20151003, end: 20151012
  5. AMOXICILLIN. [Concomitant]
     Active Substance: AMOXICILLIN
     Indication: PROPHYLAXIS
     Dosage: 500 MG, TID
     Route: 048
     Dates: start: 20151022, end: 20151030
  6. ADCIRCA [Suspect]
     Active Substance: TADALAFIL
     Indication: PULMONARY ARTERIAL HYPERTENSION
     Dosage: 40 MG, QD
     Route: 048
     Dates: start: 20150318, end: 20151221
  7. OPSUMIT [Concomitant]
     Active Substance: MACITENTAN
     Indication: PULMONARY ARTERIAL HYPERTENSION
     Dosage: 10 MG, QD
     Route: 048
     Dates: start: 20140401
  8. CELEXA [Concomitant]
     Active Substance: CITALOPRAM HYDROBROMIDE
     Indication: DEPRESSION
     Dosage: 20 MG, QD
     Route: 048
     Dates: start: 201410
  9. FLONASE                            /00908302/ [Concomitant]
     Active Substance: MOMETASONE FUROATE
     Indication: SEASONAL ALLERGY
     Dosage: 2 DF, UNKNOWN
     Route: 045
     Dates: start: 2014
  10. VALIUM [Concomitant]
     Active Substance: DIAZEPAM
     Indication: BACK PAIN
     Dosage: 5 MG, QD
     Route: 048
     Dates: start: 20150318
  11. MS CONTIN [Concomitant]
     Active Substance: MORPHINE SULFATE
     Indication: BACK PAIN
     Dosage: 15 MG, PRN
     Route: 048
     Dates: start: 2011
  12. MS CONTIN [Concomitant]
     Active Substance: MORPHINE SULFATE
     Indication: PAIN IN EXTREMITY
  13. MS CONTIN [Concomitant]
     Active Substance: MORPHINE SULFATE
     Indication: ARTHRALGIA
  14. ALLEGRA [Concomitant]
     Active Substance: FEXOFENADINE HYDROCHLORIDE
     Indication: SEASONAL ALLERGY
     Dosage: 1 DF, UNKNOWN
     Route: 048
     Dates: start: 20150326
  15. XANAX [Concomitant]
     Active Substance: ALPRAZOLAM
     Indication: INSOMNIA
     Dosage: 0.5 MG, PRN
     Route: 048
     Dates: start: 20140721
  16. OXYGEN. [Concomitant]
     Active Substance: OXYGEN
     Indication: PRODUCT USED FOR UNKNOWN INDICATION
     Dosage: 4 L, UNKNOWN
     Route: 055
     Dates: start: 201310
  17. OXYCODONE [Concomitant]
     Active Substance: OXYCODONE
     Indication: BACK PAIN
  18. PLAQUENIL [Concomitant]
     Active Substance: HYDROXYCHLOROQUINE SULFATE
     Indication: SYSTEMIC LUPUS ERYTHEMATOSUS
     Dosage: 200 MG, BID
     Route: 048
     Dates: start: 2005
  19. TYVASO [Suspect]
     Active Substance: TREPROSTINIL
     Indication: PULMONARY HYPERTENSION
     Dosage: 1 DF, QID
     Route: 055
     Dates: start: 20150422
  20. SILDENAFIL. [Concomitant]
     Active Substance: SILDENAFIL
     Indication: PULMONARY ARTERIAL HYPERTENSION
     Dosage: 25 MG, TID
     Route: 065
     Dates: start: 20151222
  21. BERAPROST SODIUM [Suspect]
     Active Substance: BERAPROST SODIUM
     Indication: PRODUCT USED FOR UNKNOWN INDICATION
     Dosage: 120 UG, UNKNOWN
     Route: 048
     Dates: start: 20150724
  22. OXYCODONE [Concomitant]
     Active Substance: OXYCODONE
     Indication: ARTHRALGIA
     Dosage: 30 MG, PRN
     Route: 065
     Dates: start: 2011

REACTIONS (13)
  - Cellulitis staphylococcal [Unknown]
  - Multiple organ dysfunction syndrome [Not Recovered/Not Resolved]
  - Hypokalaemia [Unknown]
  - Diarrhoea [Unknown]
  - Pyrexia [Not Recovered/Not Resolved]
  - Sepsis [Unknown]
  - Cyst [Unknown]
  - Headache [Unknown]
  - Gastrooesophageal reflux disease [Unknown]
  - Overdose [Unknown]
  - Hypothyroidism [Unknown]
  - Renal failure [Not Recovered/Not Resolved]
  - Autoimmune thyroiditis [Unknown]

NARRATIVE: CASE EVENT DATE: 20151203
